FAERS Safety Report 4826725-1 (Version None)
Quarter: 2005Q4

REPORT INFORMATION
  Report Type: 
  Country: None (occurrence: None)
  Receive Date: 20051110
  Receipt Date: 20051110
  Transmission Date: 20060501
  Serious: Yes (Other)
  Sender: FDA-Public Use
  Company Number: None

PATIENT
  Age: 48 Year
  Sex: Female
  Weight: 158.759 kg

DRUGS (11)
  1. SYNTHROID [Suspect]
     Indication: HYPOTHYROIDISM
     Dosage: 300 MCG QD
     Dates: start: 20040101, end: 20050101
  2. ATENOLOL [Concomitant]
  3. LORAZEPAM [Concomitant]
  4. PREVACID [Concomitant]
  5. ALBUTEROL [Concomitant]
  6. ENALAPRIL [Concomitant]
  7. EFFEXOR XR [Concomitant]
  8. DARVOCET-N 100 [Concomitant]
  9. PRAVACHOL [Concomitant]
  10. ACTOS [Concomitant]
  11. LASIX [Concomitant]

REACTIONS (3)
  - ABDOMINAL DISCOMFORT [None]
  - DRUG INTOLERANCE [None]
  - THERAPEUTIC RESPONSE UNEXPECTED WITH DRUG SUBSTITUTION [None]
